FAERS Safety Report 9176927 (Version 1)
Quarter: 2013Q1

REPORT INFORMATION
  Report Type: Spontaneous
  Country: EG (occurrence: EG)
  Receive Date: 20130321
  Receipt Date: 20130321
  Transmission Date: 20140127
  Serious: Yes (Death)
  Sender: FDA-Public Use
  Company Number: EG-JNJFOC-20130307993

PATIENT
  Sex: 0

DRUGS (6)
  1. DOXORUBICIN HYDROCHLORIDE [Suspect]
     Indication: RHABDOMYOSARCOMA
     Route: 042
  2. CARBOPLATIN [Suspect]
     Indication: RHABDOMYOSARCOMA
     Route: 065
  3. IFOSFAMIDE [Suspect]
     Indication: RHABDOMYOSARCOMA
     Route: 065
  4. ACTINOMYCIN D [Suspect]
     Indication: RHABDOMYOSARCOMA
     Route: 065
  5. ETOPOSIDE [Suspect]
     Indication: RHABDOMYOSARCOMA
     Route: 065
  6. VINCRISTINE [Suspect]
     Indication: RHABDOMYOSARCOMA
     Route: 065

REACTIONS (2)
  - Death [Fatal]
  - Off label use [Unknown]
